FAERS Safety Report 9281313 (Version 1)
Quarter: 2013Q2

REPORT INFORMATION
  Report Type: Spontaneous
  Country: CA (occurrence: CA)
  Receive Date: 20130509
  Receipt Date: 20130509
  Transmission Date: 20140414
  Serious: Yes (Death)
  Sender: FDA-Public Use
  Company Number: CA-TEVA-404039USA

PATIENT
  Age: 41 Year
  Sex: Female

DRUGS (3)
  1. BACLOFEN [Suspect]
     Dosage: 120 MILLIGRAM DAILY;
     Route: 065
  2. ETHANOL [Suspect]
     Route: 065
  3. CYMBALTA [Concomitant]
     Dosage: DELAYED RELEASE

REACTIONS (4)
  - Accidental death [Fatal]
  - Alcohol poisoning [Fatal]
  - Gastrointestinal haemorrhage [Fatal]
  - Toxicity to various agents [Fatal]
